FAERS Safety Report 23717416 (Version 1)
Quarter: 2024Q2

REPORT INFORMATION
  Report Type: Report from Study
  Country: US (occurrence: US)
  Receive Date: 20240408
  Receipt Date: 20240408
  Transmission Date: 20240716
  Serious: Yes (Other)
  Sender: FDA-Public Use
  Company Number: US-GILEAD-2024-0668291

PATIENT
  Age: 37 Year
  Sex: Male

DRUGS (2)
  1. AZTREONAM LYSINE [Suspect]
     Active Substance: AZTREONAM LYSINE
     Indication: Cystic fibrosis
     Dosage: INHALE THE CONTENTS OF 1 VIAL VIA PARI ALTERA NEBULIZER 3 TIMES A DAY FOR 28 DAYS ON AND 28 DAYS OFF
     Route: 055
     Dates: start: 201912
  2. PULMOZYME [Concomitant]
     Active Substance: DORNASE ALFA

REACTIONS (2)
  - Pseudomonas infection [Unknown]
  - Malaise [Unknown]
